FAERS Safety Report 12438351 (Version 5)
Quarter: 2017Q2

REPORT INFORMATION
  Report Type: Spontaneous
  Country: JP (occurrence: JP)
  Receive Date: 20160606
  Receipt Date: 20170606
  Transmission Date: 20170830
  Serious: Yes (Life-Threatening, Disabling, Other)
  Sender: FDA-Public Use
  Company Number: JP-009507513-1410JPN008738

PATIENT
  Age: 51 Year
  Sex: Male
  Weight: 53 kg

DRUGS (7)
  1. LEXAPRO [Concomitant]
     Active Substance: ESCITALOPRAM OXALATE
     Dosage: 5 MG, QD,AFTER SUPPER
     Route: 048
     Dates: start: 20150106
  2. RIVOTRIL [Concomitant]
     Active Substance: CLONAZEPAM
     Dosage: 0.5 MG, QD,BEFORE SLEEP
     Route: 048
     Dates: start: 20150106
  3. LEXOTAN [Concomitant]
     Active Substance: BROMAZEPAM
     Dosage: 1 MG, BID,AFTER BREAKFAST AND SUPPER
     Route: 048
     Dates: start: 20150106, end: 2015
  4. KRACIE HOCHUEKKITO EXTRACT FINE GRANULES [Concomitant]
     Dosage: 3.75 G, BID,BEFORE BREAKFAST AND SUPPER
     Route: 048
     Dates: start: 20150106
  5. LEXOTAN [Concomitant]
     Active Substance: BROMAZEPAM
     Dosage: 1 MG, PRN
     Route: 048
     Dates: start: 2015
  6. PROPECIA [Suspect]
     Active Substance: FINASTERIDE
     Indication: ANDROGENETIC ALOPECIA
     Dosage: 1 MG, QD
     Route: 048
     Dates: start: 20140909, end: 20141010
  7. TSUMURA HACHIMIJIOGAN EXTRACT GRANULES FOR ETHICAL USE [Concomitant]
     Dosage: 2.5 G, TID,BEFORE EACH MEAL
     Route: 048
     Dates: start: 20141225, end: 20150105

REACTIONS (10)
  - Tinnitus [Not Recovered/Not Resolved]
  - Visual acuity reduced [Not Recovered/Not Resolved]
  - Drug dose omission [Unknown]
  - Depressive symptom [Recovering/Resolving]
  - Sleep disorder [Recovering/Resolving]
  - Libido decreased [Not Recovered/Not Resolved]
  - Weight increased [Recovering/Resolving]
  - Erectile dysfunction [Recovering/Resolving]
  - Adverse event [Not Recovered/Not Resolved]
  - Suicidal ideation [Not Recovered/Not Resolved]

NARRATIVE: CASE EVENT DATE: 20140920
